FAERS Safety Report 12522279 (Version 2)
Quarter: 2016Q4

REPORT INFORMATION
  Report Type: Spontaneous
  Country: JP (occurrence: JP)
  Receive Date: 20160701
  Receipt Date: 20161205
  Transmission Date: 20170207
  Serious: Yes (Death, Hospitalization, Other)
  Sender: FDA-Public Use
  Company Number: PHJP2016JP017728

PATIENT
  Age: 77 Year
  Sex: Male

DRUGS (3)
  1. CELECOX [Concomitant]
     Active Substance: CELECOXIB
     Indication: BACK PAIN
     Dosage: 100 MG, BID
     Route: 065
     Dates: start: 201501, end: 20150803
  2. EXJADE [Suspect]
     Active Substance: DEFERASIROX
     Indication: MYELODYSPLASTIC SYNDROME
     Dosage: 250 MG, QD
     Route: 048
     Dates: start: 20150606, end: 20150803
  3. VIDAZA [Suspect]
     Active Substance: AZACITIDINE
     Indication: MYELODYSPLASTIC SYNDROME
     Dosage: 100 MG, QD
     Route: 041
     Dates: end: 20150803

REACTIONS (8)
  - Acute myeloid leukaemia [Unknown]
  - Serum ferritin increased [Unknown]
  - Platelet count decreased [Fatal]
  - Pneumonia [Fatal]
  - Decreased appetite [Unknown]
  - Altered state of consciousness [Fatal]
  - Cerebral haemorrhage [Fatal]
  - Bone marrow failure [Fatal]

NARRATIVE: CASE EVENT DATE: 20150714
